FAERS Safety Report 8346899-8 (Version None)
Quarter: 2012Q2

REPORT INFORMATION
  Report Type: 
  Country: None (occurrence: None)
  Receive Date: 20120509
  Receipt Date: 20120418
  Transmission Date: 20120825
  Serious: Yes (Hospitalization)
  Sender: FDA-Public Use
  Company Number: CN-JNJFOC-20110906934

PATIENT
  Sex: Female
  Weight: 47 kg

DRUGS (2)
  1. REMICADE [Suspect]
     Indication: RHEUMATOID ARTHRITIS
     Dosage: AT WEEK 2
     Route: 042
     Dates: start: 20110812
  2. REMICADE [Suspect]
     Dosage: AT WEEK 0
     Route: 042
     Dates: start: 20110729

REACTIONS (2)
  - LUNG INFECTION [None]
  - LUNG DISORDER [None]
